FAERS Safety Report 7186420-3 (Version None)
Quarter: 2010Q4

REPORT INFORMATION
  Report Type: 
  Country: None (occurrence: None)
  Receive Date: 20101222
  Receipt Date: 20101215
  Transmission Date: 20110411
  Serious: Yes (Other)
  Sender: FDA-Public Use
  Company Number: JP-BAXTER-2010BH030519

PATIENT
  Age: 9 Year
  Sex: Male

DRUGS (9)
  1. CYCLOPHOSPHAMIDE [Suspect]
     Indication: ANAPLASTIC ASTROCYTOMA
     Route: 065
  2. ETOPOSIDE [Suspect]
     Indication: ANAPLASTIC ASTROCYTOMA
     Route: 065
  3. CISPLATIN [Suspect]
     Indication: ANAPLASTIC ASTROCYTOMA
     Route: 065
  4. THIOTEPA [Suspect]
     Indication: STEM CELL TRANSPLANT
     Route: 065
  5. MELPHALAN [Suspect]
     Indication: STEM CELL TRANSPLANT
     Route: 065
  6. METHOTREXATE [Suspect]
     Indication: ANAPLASTIC ASTROCYTOMA
     Route: 065
  7. IRINOTECAN HYDROCHLORIDE FOR INJECTION [Suspect]
     Indication: ANAPLASTIC ASTROCYTOMA
     Route: 065
  8. VINCRISTINE SULFATE [Suspect]
     Indication: ANAPLASTIC ASTROCYTOMA
     Route: 065
  9. RADIOTHERAPY [Suspect]
     Indication: ANAPLASTIC ASTROCYTOMA
     Route: 065

REACTIONS (2)
  - ASTROCYTOMA [None]
  - BONE SARCOMA [None]
